FAERS Safety Report 25788410 (Version 1)
Quarter: 2025Q3

REPORT INFORMATION
  Report Type: Spontaneous
  Country: CN (occurrence: CN)
  Receive Date: 20250910
  Receipt Date: 20250910
  Transmission Date: 20251020
  Serious: Yes (Hospitalization, Other)
  Sender: ELI LILLY AND COMPANY
  Company Number: CN-Merck Healthcare KGaA-2025045395

PATIENT
  Age: 44 Year
  Sex: Female
  Weight: 53 kg

DRUGS (5)
  1. ERBITUX [Suspect]
     Active Substance: CETUXIMAB
     Indication: Rectal cancer
     Route: 041
     Dates: start: 20250326, end: 20250326
  2. OXALIPLATIN [Suspect]
     Active Substance: OXALIPLATIN
     Indication: Rectal cancer
     Dosage: 130 MG, DAILY
     Route: 041
     Dates: start: 20250326, end: 20250326
  3. FLUOROURACIL [Suspect]
     Active Substance: FLUOROURACIL
     Indication: Rectal cancer
     Dosage: 3 G, DAILY
     Dates: start: 20250326, end: 20250326
  4. FLUOROURACIL [Suspect]
     Active Substance: FLUOROURACIL
     Dosage: .5 G, DAILY
     Route: 041
     Dates: start: 20250326, end: 20250326
  5. LEUCOVORIN CALCIUM [Concomitant]
     Active Substance: LEUCOVORIN CALCIUM
     Indication: Rectal cancer
     Dosage: 0.6 G, DAILY
     Route: 041
     Dates: start: 20250326, end: 20250326

REACTIONS (1)
  - Myelosuppression [Recovering/Resolving]

NARRATIVE: CASE EVENT DATE: 20250410
